FAERS Safety Report 12702962 (Version 1)
Quarter: 2016Q3

REPORT INFORMATION
  Report Type: Spontaneous
  Country: MZ (occurrence: MZ)
  Receive Date: 20160831
  Receipt Date: 20160831
  Transmission Date: 20161109
  Serious: Yes (Death, Other)
  Sender: FDA-Public Use
  Company Number: MZ-GLAXOSMITHKLINE-MZ2016GSK126089

PATIENT
  Sex: Female

DRUGS (12)
  1. PARACETAMOL [Suspect]
     Active Substance: ACETAMINOPHEN
     Indication: PAIN
     Dosage: 15 MG, TID (EVERY 8 HOURS)
  2. VANCOMYCIN [Suspect]
     Active Substance: VANCOMYCIN
     Indication: PRODUCT USED FOR UNKNOWN INDICATION
     Dosage: 15 MG, SINGLE
     Route: 042
  3. VANCOMYCIN [Suspect]
     Active Substance: VANCOMYCIN
     Dosage: 10 MG, BID (EVERY 12 H)
     Route: 042
  4. CEFEPIME [Suspect]
     Active Substance: CEFEPIME HYDROCHLORIDE
     Indication: PRODUCT USED FOR UNKNOWN INDICATION
     Dosage: 30 MG, BID (EVERY 12 H)
  5. EFAVIRENZ [Suspect]
     Active Substance: EFAVIRENZ
     Indication: ANTIRETROVIRAL THERAPY
     Dosage: 600 MG, UNK
     Route: 064
  6. AZIDOTHYMIDINE [Suspect]
     Active Substance: ZIDOVUDINE
     Indication: PRODUCT USED FOR UNKNOWN INDICATION
     Dosage: 0.5 ML, BID
  7. CEFOTAXIME [Suspect]
     Active Substance: CEFOTAXIME SODIUM
     Indication: APLASIA CUTIS CONGENITA
     Dosage: 70 MG FOR 12 H
  8. SILVER SULFADIAZINE. [Suspect]
     Active Substance: SILVER SULFADIAZINE
     Indication: SKIN LESION
     Dosage: SILVER SULFADIAZINE DRESSING
     Route: 061
  9. LAMIVUDINE. [Suspect]
     Active Substance: LAMIVUDINE
     Indication: ANTIRETROVIRAL THERAPY
     Dosage: 300 MG, UNK
     Route: 064
  10. GENTAMICIN. [Suspect]
     Active Substance: GENTAMICIN
     Indication: APLASIA CUTIS CONGENITA
     Dosage: 6 MG, QD
  11. TENOFOVIR DISOPROXIL FUMARATE. [Suspect]
     Active Substance: TENOFOVIR DISOPROXIL FUMARATE
     Indication: ANTIRETROVIRAL THERAPY
     Dosage: 300 MG, UNK
     Route: 064
  12. FLUCONAZOLE. [Suspect]
     Active Substance: FLUCONAZOLE
     Indication: PRODUCT USED FOR UNKNOWN INDICATION
     Dosage: 6 MG, EVERY 72 H

REACTIONS (17)
  - Weight decreased [Unknown]
  - Skin exfoliation [Unknown]
  - Aplasia cutis congenita [Fatal]
  - Skin necrosis [Unknown]
  - Fistula [Unknown]
  - Contraindication to medical treatment [Unknown]
  - Condition aggravated [Unknown]
  - Irritability [Unknown]
  - Necrosis [Unknown]
  - Skin disorder [Unknown]
  - Skin lesion [Unknown]
  - Laceration [Unknown]
  - Selective eating disorder [Unknown]
  - Foetal exposure during pregnancy [Unknown]
  - Pain [Unknown]
  - Abdominal distension [Unknown]
  - Treatment failure [Unknown]
